FAERS Safety Report 6122610-6 (Version None)
Quarter: 2009Q1

REPORT INFORMATION
  Report Type: 
  Country: None (occurrence: None)
  Receive Date: 20090318
  Receipt Date: 20090310
  Transmission Date: 20090719
  Serious: Yes (Other)
  Sender: FDA-Public Use
  Company Number: BE-ABBOTT-09P-013-0562175-00

PATIENT

DRUGS (1)
  1. REDUCTIL [Suspect]
     Indication: DRUG EXPOSURE DURING PREGNANCY
     Route: 064

REACTIONS (2)
  - ATRIOVENTRICULAR BLOCK COMPLETE [None]
  - DRUG EXPOSURE DURING PREGNANCY [None]
